FAERS Safety Report 7024182-0 (Version None)
Quarter: 2010Q4

REPORT INFORMATION
  Report Type: 
  Country: None (occurrence: None)
  Receive Date: 20101001
  Receipt Date: 20100922
  Transmission Date: 20110411
  Serious: Yes (Hospitalization)
  Sender: FDA-Public Use
  Company Number: US-ROCHE-723744

PATIENT
  Age: 43 Year
  Sex: Female
  Weight: 74.8 kg

DRUGS (4)
  1. BEVACIZUMAB [Suspect]
     Route: 065
     Dates: start: 20100713, end: 20100803
  2. TRASTUZUMAB [Suspect]
     Route: 065
  3. DOCETAXEL [Suspect]
     Route: 065
  4. NAFCILLIN [Suspect]
     Indication: EMPHYSEMA
     Dosage: DOSE, FORM, ROUTE AND FREQUENCY NOT PROVIDED.
     Route: 065

REACTIONS (4)
  - DIARRHOEA [None]
  - EMPYEMA [None]
  - PYREXIA [None]
  - RESPIRATORY DISORDER [None]
